FAERS Safety Report 4372709-X (Version None)
Quarter: 2004Q2

REPORT INFORMATION
  Report Type: 
  Country: None (occurrence: None)
  Receive Date: 20040603
  Receipt Date: 20040518
  Transmission Date: 20050107
  Serious: Yes (Hospitalization)
  Sender: FDA-Public Use
  Company Number: A01200402236

PATIENT
  Age: 41 Year
  Sex: Male

DRUGS (2)
  1. CLOPIDOGREL BISULFATE [Suspect]
     Indication: SUICIDE ATTEMPT
     Dosage: 1650 MG ONCE, ORAL
     Route: 048
     Dates: start: 20040504
  2. (SIMVASTATIN) - UNKNOWN - 20 MG [Suspect]
     Indication: SUICIDE ATTEMPT
     Dosage: 160 MG ONCE
     Dates: start: 20040504

REACTIONS (12)
  - ACTIVATED PARTIAL THROMBOPLASTIN TIME SHORTENED [None]
  - ALANINE AMINOTRANSFERASE INCREASED [None]
  - BLOOD ALKALINE PHOSPHATASE INCREASED [None]
  - BLOOD CREATINE PHOSPHOKINASE MB INCREASED [None]
  - DRUG TOXICITY [None]
  - GAMMA-GLUTAMYLTRANSFERASE INCREASED [None]
  - HEPATIC ENZYME INCREASED [None]
  - INTENTIONAL OVERDOSE [None]
  - INTERNATIONAL NORMALISED RATIO DECREASED [None]
  - PLATELET AGGREGATION ABNORMAL [None]
  - PROTHROMBIN TIME SHORTENED [None]
  - SUICIDE ATTEMPT [None]
